FAERS Safety Report 24784419 (Version 1)
Quarter: 2024Q4

REPORT INFORMATION
  Report Type: Spontaneous
  Country: US (occurrence: US)
  Receive Date: 20241227
  Receipt Date: 20241227
  Transmission Date: 20250115
  Serious: Yes (Death)
  Sender: RIGEL PHARMACEUTICALS
  Company Number: US-BLUEPRINT MEDICINES CORPORATION-2024BUS004792

PATIENT
  Age: 68 Year

DRUGS (1)
  1. GAVRETO [Suspect]
     Active Substance: PRALSETINIB
     Indication: Familial medullary thyroid cancer
     Dosage: 100 MILLIGRAM, QD
     Route: 065

REACTIONS (2)
  - Disease progression [Fatal]
  - Performance status decreased [Fatal]
